FAERS Safety Report 23542632 (Version 1)
Quarter: 2024Q1

REPORT INFORMATION
  Report Type: Spontaneous
  Country: US (occurrence: US)
  Receive Date: 20240220
  Receipt Date: 20240220
  Transmission Date: 20240410
  Serious: Yes (Other)
  Sender: FDA-Public Use
  Company Number: US-ALKEM LABORATORIES LIMITED-US-ALKEM-2023-00192

PATIENT
  Age: 7 Year
  Sex: Female

DRUGS (1)
  1. TRIAMCINOLONE ACETONIDE [Suspect]
     Active Substance: TRIAMCINOLONE ACETONIDE
     Indication: Keloid scar
     Dosage: 10 DOSAGE FORM (10 INJECTIONS OF TAC OVER 6 MONTHS, 500-600 MG) 2 KELOIDS
     Route: 065

REACTIONS (1)
  - Cushing^s syndrome [Not Recovered/Not Resolved]
